FAERS Safety Report 12889526 (Version 1)
Quarter: 2016Q4

REPORT INFORMATION
  Report Type: Spontaneous
  Country: US (occurrence: US)
  Receive Date: 20161027
  Receipt Date: 20161027
  Transmission Date: 20170207
  Serious: No
  Sender: FDA-Public Use
  Company Number: US-MORTON GROVE PHARMACEUTICALS, INC.-1058957

PATIENT
  Age: 65 Year
  Sex: Female

DRUGS (4)
  1. MULTIVITAMIN [Concomitant]
     Active Substance: VITAMINS
  2. PROPRANOLOL [Concomitant]
     Active Substance: PROPRANOLOL\PROPRANOLOL HYDROCHLORIDE
  3. FLUTICASONE PROPIONATE NASAL SPRAY USP, 50 MCG/SPRAY [Suspect]
     Active Substance: FLUTICASONE PROPIONATE
     Indication: RHINITIS ALLERGIC
     Dates: start: 20160919
  4. LAMICTAL [Concomitant]
     Active Substance: LAMOTRIGINE

REACTIONS (4)
  - Drug ineffective [None]
  - Cold sweat [None]
  - Hot flush [None]
  - Hyperhidrosis [Recovered/Resolved]

NARRATIVE: CASE EVENT DATE: 20160919
